FAERS Safety Report 24587365 (Version 1)
Quarter: 2024Q4

REPORT INFORMATION
  Report Type: Report from Study
  Country: CA (occurrence: CA)
  Receive Date: 20241107
  Receipt Date: 20241107
  Transmission Date: 20250115
  Serious: Yes (Other)
  Sender: NOVARTIS
  Company Number: CA-002147023-NVSC2024CA156356

PATIENT
  Sex: Female

DRUGS (1)
  1. KESIMPTA [Suspect]
     Active Substance: OFATUMUMAB
     Indication: Relapsing-remitting multiple sclerosis
     Dosage: UNK, Q4W
     Route: 058
     Dates: start: 20240726

REACTIONS (7)
  - Multiple sclerosis [Unknown]
  - Headache [Recovered/Resolved]
  - Pain [Recovered/Resolved]
  - Neuralgia [Recovered/Resolved]
  - Fatigue [Recovered/Resolved]
  - Condition aggravated [Recovered/Resolved]
  - Therapeutic response shortened [Unknown]
